FAERS Safety Report 4538392-5 (Version None)
Quarter: 2004Q4

REPORT INFORMATION
  Report Type: 
  Country: None (occurrence: None)
  Receive Date: 20041223
  Receipt Date: 20041223
  Transmission Date: 20050328
  Serious: Yes (Hospitalization)
  Sender: FDA-Public Use
  Company Number: None

PATIENT
  Age: 72 Year
  Sex: Male
  Weight: 73.4827 kg

DRUGS (2)
  1. ASPIRIN [Suspect]
     Dosage: 325 MG QD
     Route: 048
  2. NAPROXEN [Suspect]
     Dosage: 500 MG PO BID
     Route: 048

REACTIONS (1)
  - HAEMATURIA [None]
